FAERS Safety Report 10009610 (Version 1)
Quarter: 2014Q1

REPORT INFORMATION
  Report Type: Spontaneous
  Country: US (occurrence: US)
  Receive Date: 20140312
  Receipt Date: 20140312
  Transmission Date: 20141002
  Serious: No
  Sender: FDA-Public Use
  Company Number: US-INCYTE CORPORATION-2012IN002017

PATIENT
  Sex: Male

DRUGS (3)
  1. JAKAFI [Suspect]
     Indication: RENAL CANCER
     Dosage: 20 MG, BID
     Route: 048
     Dates: start: 20120329, end: 2012
  2. JAKAFI [Suspect]
     Dosage: 10 MG, BID
     Route: 048
     Dates: start: 2012, end: 2012
  3. JAKAFI [Suspect]
     Dosage: 10 MG, QAM + 20 MG, QHS
     Route: 048
     Dates: start: 2012

REACTIONS (4)
  - Blood test abnormal [Unknown]
  - Middle insomnia [Unknown]
  - Vertigo [Unknown]
  - Dizziness [Unknown]
